FAERS Safety Report 8362182-9 (Version None)
Quarter: 2012Q2

REPORT INFORMATION
  Report Type: 
  Country: None (occurrence: None)
  Receive Date: 20120515
  Receipt Date: 20120511
  Transmission Date: 20120825
  Serious: Yes (Hospitalization)
  Sender: FDA-Public Use
  Company Number: US-MERCK-1204USA03214

PATIENT
  Age: 74 Year
  Sex: Female

DRUGS (11)
  1. LEUCOVORIN CALCIUM [Concomitant]
     Route: 065
  2. PLAQUENIL [Concomitant]
     Route: 065
  3. GLIPIZIDE [Concomitant]
     Route: 065
  4. FOLIC ACID [Concomitant]
     Route: 065
  5. NITROGLYCERIN [Concomitant]
     Route: 065
  6. PROVENTIL [Concomitant]
     Route: 065
  7. ZANTAC [Concomitant]
     Route: 065
  8. JANUVIA [Suspect]
     Indication: DIABETES MELLITUS
     Route: 048
     Dates: start: 20110912, end: 20120415
  9. METHOTREXATE [Concomitant]
     Route: 065
  10. CLONAZEPAM [Concomitant]
     Route: 065
  11. CRESTOR [Concomitant]
     Route: 065

REACTIONS (2)
  - DYSPNOEA [None]
  - ANGIOEDEMA [None]
